FAERS Safety Report 6675291-7 (Version None)
Quarter: 2010Q2

REPORT INFORMATION
  Report Type: 
  Country: None (occurrence: None)
  Receive Date: 20100409
  Receipt Date: 20100113
  Transmission Date: 20101027
  Serious: No
  Sender: FDA-Public Use
  Company Number: A0839220A

PATIENT
  Age: 68 Year
  Sex: Female

DRUGS (8)
  1. TYKERB [Suspect]
     Indication: NEOPLASM
     Dosage: 5TAB PER DAY
     Route: 048
     Dates: start: 20091228
  2. HUMULIN R [Concomitant]
  3. LAPIS [Concomitant]
  4. SYNTHROID [Concomitant]
  5. CLARITHROMYCIN [Concomitant]
  6. BACTRIM [Concomitant]
  7. MULTI-VITAMINS [Concomitant]
  8. VITAMIN D [Concomitant]

REACTIONS (8)
  - DIARRHOEA [None]
  - GLOSSODYNIA [None]
  - NAUSEA [None]
  - PRURITUS GENERALISED [None]
  - RASH [None]
  - RASH PAPULAR [None]
  - STOMATITIS [None]
  - TONGUE DISORDER [None]
